FAERS Safety Report 23185466 (Version 1)
Quarter: 2023Q4

REPORT INFORMATION
  Report Type: Spontaneous
  Country: US (occurrence: None)
  Receive Date: 20231114
  Receipt Date: 20231114
  Transmission Date: 20240110
  Serious: No
  Sender: FDA-Public Use
  Company Number: None

PATIENT
  Age: 22 Year
  Sex: Female
  Weight: 58.5 kg

DRUGS (2)
  1. MONISTAT 1 COMBINATION PACK [Suspect]
     Active Substance: MICONAZOLE NITRATE
     Indication: Vulvovaginal mycotic infection
     Dates: start: 20231114
  2. XULANE [Concomitant]
     Active Substance: ETHINYL ESTRADIOL\NORELGESTROMIN

REACTIONS (1)
  - Vulvovaginal burning sensation [None]

NARRATIVE: CASE EVENT DATE: 20231114
